FAERS Safety Report 6089467-3 (Version None)
Quarter: 2009Q1

REPORT INFORMATION
  Report Type: 
  Country: None (occurrence: None)
  Receive Date: 20090224
  Receipt Date: 20090212
  Transmission Date: 20090719
  Serious: Yes (Hospitalization, Other)
  Sender: FDA-Public Use
  Company Number: US-PFIZER INC-2009162375

PATIENT
  Sex: Male

DRUGS (2)
  1. GEODON [Suspect]
  2. ARICEPT [Suspect]
     Indication: DEMENTIA ALZHEIMER'S TYPE
     Dates: start: 20081018

REACTIONS (10)
  - BIPOLAR I DISORDER [None]
  - CARCINOID TUMOUR OF THE APPENDIX [None]
  - DEMENTIA ALZHEIMER'S TYPE [None]
  - FATIGUE [None]
  - MENTAL DISORDER [None]
  - MYOCARDIAL INFARCTION [None]
  - NOCTURIA [None]
  - PHYSICAL ASSAULT [None]
  - PSYCHOTIC DISORDER [None]
  - RESPIRATORY ARREST [None]
